FAERS Safety Report 9697949 (Version 3)
Quarter: 2014Q2

REPORT INFORMATION
  Report Type: Spontaneous
  Country: US (occurrence: US)
  Receive Date: 20131120
  Receipt Date: 20140610
  Transmission Date: 20141212
  Serious: Yes (Hospitalization, Other)
  Sender: FDA-Public Use
  Company Number: US-BAYER-2013-138216

PATIENT
  Age: 25 Year
  Sex: Female
  Weight: 136.51 kg

DRUGS (1)
  1. MIRENA [Suspect]
     Indication: CONTRACEPTION
     Dosage: 20 MCG/24HR, CONT
     Route: 015
     Dates: start: 20100128, end: 20110803

REACTIONS (15)
  - Device dislocation [None]
  - Vaginal haemorrhage [None]
  - Vaginal haemorrhage [None]
  - Pelvic pain [None]
  - Injury [None]
  - Pain [None]
  - Emotional distress [None]
  - Abdominal pain lower [None]
  - Menorrhagia [None]
  - Paranoia [None]
  - Device issue [None]
  - Dizziness [None]
  - Nausea [None]
  - Genital haemorrhage [None]
  - Mental disorder [None]
